FAERS Safety Report 14670864 (Version 1)
Quarter: 2018Q1

REPORT INFORMATION
  Report Type: Spontaneous
  Country: US (occurrence: US)
  Receive Date: 20180321
  Receipt Date: 20180321
  Transmission Date: 20180509
  Serious: Yes (Hospitalization)
  Sender: FDA-Public Use
  Company Number: None

PATIENT
  Age: 70 Year
  Sex: Male
  Weight: 83.01 kg

DRUGS (1)
  1. HYDRALAZINE [Suspect]
     Active Substance: HYDRALAZINE HYDROCHLORIDE
     Indication: HYPERTENSION
     Route: 042
     Dates: start: 20180319, end: 20180319

REACTIONS (9)
  - Dizziness postural [None]
  - Hypotension [None]
  - Blood pressure systolic decreased [None]
  - Back pain [None]
  - Urinary retention [None]
  - Angina pectoris [None]
  - Electrocardiogram ST segment depression [None]
  - Electrocardiogram T wave inversion [None]
  - Therapy change [None]

NARRATIVE: CASE EVENT DATE: 20180319
